FAERS Safety Report 12317009 (Version 1)
Quarter: 2016Q2

REPORT INFORMATION
  Report Type: Spontaneous
  Country: US (occurrence: None)
  Receive Date: 20160428
  Receipt Date: 20160428
  Transmission Date: 20160815
  Serious: No
  Sender: FDA-Public Use
  Company Number: None

PATIENT
  Age: 28 Year
  Sex: Male
  Weight: 92.53 kg

DRUGS (1)
  1. ABILIFY [Suspect]
     Active Substance: ARIPIPRAZOLE
     Indication: BIPOLAR DISORDER
     Dosage: 1 INJECTION(S) EV ERY 28 DAYS INTO THE MUSCLE
     Dates: start: 20150415, end: 20160427

REACTIONS (4)
  - Pain [None]
  - Blood cholesterol increased [None]
  - Weight increased [None]
  - Akathisia [None]

NARRATIVE: CASE EVENT DATE: 20150415
